FAERS Safety Report 4591291-5 (Version None)
Quarter: 2005Q1

REPORT INFORMATION
  Report Type: 
  Country: None (occurrence: None)
  Receive Date: 20050225
  Receipt Date: 20040708
  Transmission Date: 20050727
  Serious: Yes (Hospitalization)
  Sender: FDA-Public Use
  Company Number: US-ROCHE-373933

PATIENT
  Age: 54 Year
  Sex: Male
  Weight: 79.4 kg

DRUGS (4)
  1. DACLIZUMAB [Suspect]
     Indication: DRUG USE FOR UNKNOWN INDICATION
     Route: 065
  2. PEGASYS [Suspect]
     Indication: HEPATITIS C
     Dosage: DOSE REGIMEN REPORTED AS 180.
     Route: 030
     Dates: start: 20040526, end: 20050211
  3. COPEGUS [Suspect]
     Indication: HEPATITIS C
     Dosage: DOSE REGIMEN REPORTED AS 800.
     Route: 048
     Dates: start: 20040526
  4. VALCYTE [Concomitant]
     Indication: DRUG USE FOR UNKNOWN INDICATION
     Route: 048

REACTIONS (4)
  - ANAEMIA [None]
  - DYSPNOEA [None]
  - NEUTROPENIA [None]
  - VISUAL FIELD DEFECT [None]
